FAERS Safety Report 12616218 (Version 2)
Quarter: 2016Q3

REPORT INFORMATION
  Report Type: Report from Study
  Country: BR (occurrence: BR)
  Receive Date: 20160802
  Receipt Date: 20160816
  Transmission Date: 20161109
  Serious: Yes (Other)
  Sender: FDA-Public Use
  Company Number: PHHY2016BR103993

PATIENT
  Sex: Female

DRUGS (2)
  1. TOFRANIL [Suspect]
     Active Substance: IMIPRAMINE HYDROCHLORIDE
     Indication: PRODUCT USED FOR UNKNOWN INDICATION
     Dosage: 25 MG, UNK
     Route: 048
  2. DIOVAN [Suspect]
     Active Substance: VALSARTAN
     Indication: PRODUCT USED FOR UNKNOWN INDICATION
     Route: 048

REACTIONS (8)
  - Drug dependence [Unknown]
  - Dizziness [Unknown]
  - Anxiety [Unknown]
  - Headache [Unknown]
  - Malaise [Unknown]
  - Insomnia [Unknown]
  - Head discomfort [Unknown]
  - Migraine [Unknown]
